FAERS Safety Report 21983228 (Version 4)
Quarter: 2023Q2

REPORT INFORMATION
  Report Type: Report from Study
  Country: US (occurrence: US)
  Receive Date: 20230213
  Receipt Date: 20230530
  Transmission Date: 20230722
  Serious: Yes (Hospitalization, Other)
  Sender: FDA-Public Use
  Company Number: US-TAKEDA-2023TUS015174

PATIENT
  Sex: Male

DRUGS (8)
  1. TEDUGLUTIDE [Suspect]
     Active Substance: TEDUGLUTIDE
     Indication: Short-bowel syndrome
     Dosage: 0.18 MILLILITER, QD
     Route: 058
     Dates: start: 202212
  2. TEDUGLUTIDE [Suspect]
     Active Substance: TEDUGLUTIDE
     Indication: Short-bowel syndrome
     Dosage: 0.18 MILLILITER, QD
     Route: 058
     Dates: start: 202212
  3. TEDUGLUTIDE [Suspect]
     Active Substance: TEDUGLUTIDE
     Indication: Short-bowel syndrome
     Dosage: 0.18 MILLILITER, QD
     Route: 058
     Dates: start: 202212
  4. TEDUGLUTIDE [Suspect]
     Active Substance: TEDUGLUTIDE
     Indication: Short-bowel syndrome
     Dosage: 0.18 MILLILITER, QD
     Route: 058
     Dates: start: 202212
  5. TEDUGLUTIDE [Suspect]
     Active Substance: TEDUGLUTIDE
     Dosage: 0.18 MILLILITER, QD
     Route: 048
     Dates: start: 20221222
  6. TEDUGLUTIDE [Suspect]
     Active Substance: TEDUGLUTIDE
     Dosage: 0.18 MILLILITER, QD
     Route: 048
     Dates: start: 20221222
  7. TEDUGLUTIDE [Suspect]
     Active Substance: TEDUGLUTIDE
     Dosage: 0.18 MILLILITER, QD
     Route: 048
     Dates: start: 20221222
  8. TEDUGLUTIDE [Suspect]
     Active Substance: TEDUGLUTIDE
     Dosage: 0.18 MILLILITER, QD
     Route: 048
     Dates: start: 20221222

REACTIONS (5)
  - Dehydration [Unknown]
  - Vascular device infection [Unknown]
  - Gastrointestinal bacterial overgrowth [Unknown]
  - Drug ineffective [Unknown]
  - Product dose omission issue [Unknown]
